FAERS Safety Report 16910048 (Version 1)
Quarter: 2019Q4

REPORT INFORMATION
  Report Type: Spontaneous
  Country: US (occurrence: US)
  Receive Date: 20191011
  Receipt Date: 20191011
  Transmission Date: 20200122
  Serious: No
  Sender: FDA-Public Use
  Company Number: US-PERRIGO-18US013739

PATIENT
  Age: 58 Year
  Sex: Female
  Weight: 120.18 kg

DRUGS (5)
  1. PAXIL [Concomitant]
     Active Substance: PAROXETINE HYDROCHLORIDE
     Indication: ANXIETY
     Dosage: UNK
     Route: 065
  2. NICOTINE POLACRILEX [Suspect]
     Active Substance: NICOTINE
     Indication: SMOKING CESSATION THERAPY
     Dosage: 4 MG, UP TO 5 TIMES DAILY
     Route: 002
     Dates: start: 20181124, end: 20181127
  3. LIPITOR [Concomitant]
     Active Substance: ATORVASTATIN CALCIUM
     Indication: BLOOD CHOLESTEROL INCREASED
     Dosage: UNK
     Route: 065
  4. SEROQUEL [Concomitant]
     Active Substance: QUETIAPINE FUMARATE
     Indication: INSOMNIA
     Dosage: UNK
     Route: 065
  5. CLONAZEPAM. [Concomitant]
     Active Substance: CLONAZEPAM
     Indication: BIPOLAR DISORDER
     Dosage: UNK
     Route: 048

REACTIONS (1)
  - Drug ineffective [Unknown]

NARRATIVE: CASE EVENT DATE: 20181124
